FAERS Safety Report 16231248 (Version 1)
Quarter: 2019Q2

REPORT INFORMATION
  Report Type: Spontaneous
  Country: US (occurrence: US)
  Receive Date: 20190424
  Receipt Date: 20190424
  Transmission Date: 20190711
  Serious: No
  Sender: FDA-Public Use
  Company Number: US-TEVA-2019-US-1041386

PATIENT
  Sex: Female

DRUGS (1)
  1. PRAVASTATIN SODIUM TABLETS, USP [Suspect]
     Active Substance: PRAVASTATIN SODIUM
     Indication: BLOOD CHOLESTEROL INCREASED

REACTIONS (5)
  - Cough [Unknown]
  - Peripheral coldness [Unknown]
  - Burning sensation [Unknown]
  - Musculoskeletal stiffness [Unknown]
  - Skin indentation [Unknown]
